FAERS Safety Report 25774686 (Version 1)
Quarter: 2025Q3

REPORT INFORMATION
  Report Type: Spontaneous
  Country: US (occurrence: None)
  Receive Date: 20250905
  Receipt Date: 20250905
  Transmission Date: 20251020
  Serious: Yes (Other)
  Sender: FDA-CTU
  Company Number: None

PATIENT
  Age: 33 Year
  Sex: Male
  Weight: 76.5 kg

DRUGS (2)
  1. .DELTA.9-TETRAHYDROCANNABINOLIC ACID\HERBALS [Suspect]
     Active Substance: .DELTA.9-TETRAHYDROCANNABINOLIC ACID\HERBALS
     Indication: Pain
     Route: 055
     Dates: end: 20250905
  2. Medical Cannabis, I use a Glass Rig with a Quartz Banger to vaporize p [Concomitant]

REACTIONS (9)
  - Product contamination physical [None]
  - Anxiety [None]
  - Product taste abnormal [None]
  - Product contamination physical [None]
  - Dyspnoea [None]
  - Headache [None]
  - Illness [None]
  - Suspected product tampering [None]
  - No reaction on previous exposure to drug [None]

NARRATIVE: CASE EVENT DATE: 20250902
